FAERS Safety Report 4866202-5 (Version None)
Quarter: 2005Q4

REPORT INFORMATION
  Report Type: 
  Country: None (occurrence: None)
  Receive Date: 20051227
  Receipt Date: 20051213
  Transmission Date: 20060501
  Serious: Yes (Hospitalization)
  Sender: FDA-Public Use
  Company Number: SE-JNJFOC-20040607876

PATIENT
  Age: 64 Year
  Sex: Female

DRUGS (7)
  1. REMICADE [Suspect]
     Indication: RHEUMATOID ARTHRITIS
     Route: 042
  2. METHOTREXATE [Suspect]
     Indication: RHEUMATOID ARTHRITIS
     Route: 048
  3. ALVEDON [Concomitant]
  4. WARAN [Concomitant]
  5. CALCICHEW D3 [Concomitant]
  6. LOSEC [Concomitant]
  7. PREDNISOLONE [Concomitant]

REACTIONS (3)
  - ALVEOLITIS FIBROSING [None]
  - PNEUMOCYSTIS JIROVECI INFECTION [None]
  - PNEUMONITIS [None]
